FAERS Safety Report 8791149 (Version 2)
Quarter: 2012Q4

REPORT INFORMATION
  Report Type: Spontaneous
  Country: IL (occurrence: None)
  Receive Date: 20120912
  Receipt Date: 20121018
  Transmission Date: 20130627
  Serious: Yes (Hospitalization, Other)
  Sender: FDA-Public Use
  Company Number: 2012-003229

PATIENT
  Age: 84 Year
  Sex: Male

DRUGS (1)
  1. ACTONEL (RISEDRONATE SODIUM) TABLET, 150MG [Suspect]
     Indication: OSTEOPOROSIS
     Route: 048
     Dates: start: 201106, end: 201209

REACTIONS (8)
  - Splenomegaly [None]
  - Anaemia [None]
  - Leukocytosis [None]
  - Asthenia [None]
  - Dizziness [None]
  - Abdominal pain [None]
  - Non-Hodgkin^s lymphoma [None]
  - Hypercalcaemia [None]
